FAERS Safety Report 9507953 (Version 1)
Quarter: 2013Q3

REPORT INFORMATION
  Report Type: Spontaneous
  Country: IR (occurrence: None)
  Receive Date: 20130905
  Receipt Date: 20130905
  Transmission Date: 20140515
  Serious: Yes (Hospitalization)
  Sender: FDA-Public Use
  Company Number: SYM-2013-10052

PATIENT
  Age: 25 Year
  Sex: Male

DRUGS (4)
  1. FLUOROURACIL [Suspect]
  2. IRINOTECAN [Suspect]
  3. OXALIPLATIN [Suspect]
  4. FOLINIC ACID [Suspect]

REACTIONS (1)
  - Chronic myeloid leukaemia [None]
